FAERS Safety Report 6173151-1 (Version None)
Quarter: 2009Q2

REPORT INFORMATION
  Report Type: 
  Country: None (occurrence: None)
  Receive Date: 20090428
  Receipt Date: 20090414
  Transmission Date: 20091009
  Serious: Yes (Other)
  Sender: FDA-Public Use
  Company Number: 2009001137

PATIENT
  Age: 75 Year
  Sex: Female

DRUGS (7)
  1. TARCEVA [Suspect]
     Indication: METASTATIC NEOPLASM
     Dosage: (125 MG, QD), ORAL; (100 MG, QD), ORAL
     Route: 048
     Dates: start: 20061010, end: 20080422
  2. TARCEVA [Suspect]
     Indication: METASTATIC NEOPLASM
     Dosage: (125 MG, QD), ORAL; (100 MG, QD), ORAL
     Route: 048
     Dates: start: 20080423
  3. ZOFRAN [Concomitant]
  4. ZYRTEC [Concomitant]
  5. DUSPATALIN [Concomitant]
  6. RABEPRAZOLE SODIUM [Concomitant]
  7. LEVOTHYROXINE SODIUM [Concomitant]

REACTIONS (3)
  - DEHYDRATION [None]
  - EYE DISORDER [None]
  - GASTROENTERITIS [None]
